FAERS Safety Report 12628203 (Version 2)
Quarter: 2018Q2

REPORT INFORMATION
  Report Type: Spontaneous
  Country: JP (occurrence: JP)
  Receive Date: 20160808
  Receipt Date: 20180530
  Transmission Date: 20180711
  Serious: Yes (Death)
  Sender: FDA-Public Use
  Company Number: JP-ACTELION-A-CH2016-140240

PATIENT
  Age: 1 Year
  Sex: Male

DRUGS (15)
  1. EPOPROSTENOL ACT [Suspect]
     Active Substance: EPOPROSTENOL
     Dosage: 2 NG/KG, PER MIN
     Route: 042
     Dates: start: 20150707
  2. EPOPROSTENOL ACT [Suspect]
     Active Substance: EPOPROSTENOL
     Dosage: 26 NG/KG, PER MIN
     Route: 042
     Dates: start: 20160407
  3. TRACLEER [Concomitant]
     Active Substance: BOSENTAN
     Dosage: 62.5 UNK, UNK
     Route: 048
  4. ADCIRCA [Concomitant]
     Active Substance: TADALAFIL
  5. ADEMPAS [Concomitant]
     Active Substance: RIOCIGUAT
  6. EPOPROSTENOL ACT [Suspect]
     Active Substance: EPOPROSTENOL
     Indication: PERSISTENT FOETAL CIRCULATION
     Dosage: 40 NG/KG, PER MIN
     Route: 042
     Dates: start: 20160707, end: 20160708
  7. REVATIO [Concomitant]
     Active Substance: SILDENAFIL CITRATE
  8. OXYGEN. [Concomitant]
     Active Substance: OXYGEN
  9. OPSUMIT [Concomitant]
     Active Substance: MACITENTAN
     Dosage: 10 MG, UNK
     Route: 048
  10. ALDACTONE [Concomitant]
     Active Substance: SPIRONOLACTONE
  11. EPOPROSTENOL ACT [Suspect]
     Active Substance: EPOPROSTENOL
     Dosage: 11 NG/KG, PER MIN
     Route: 042
     Dates: start: 20151007
  12. TRACLEER [Concomitant]
     Active Substance: BOSENTAN
     Dosage: 62.5 UNK, UNK
     Route: 048
  13. EPOPROSTENOL ACT [Suspect]
     Active Substance: EPOPROSTENOL
     Dosage: 17 NG/KG, PER MIN
     Route: 042
     Dates: start: 20160107
  14. FUROSEMIDE. [Concomitant]
     Active Substance: FUROSEMIDE
  15. NITRIC OXIDE. [Concomitant]
     Active Substance: NITRIC OXIDE

REACTIONS (5)
  - Persistent foetal circulation [Fatal]
  - Condition aggravated [Fatal]
  - Respiratory failure [Fatal]
  - Oxygen saturation decreased [Fatal]
  - Heart rate decreased [Fatal]

NARRATIVE: CASE EVENT DATE: 20160708
